FAERS Safety Report 4485213-5 (Version None)
Quarter: 2004Q4

REPORT INFORMATION
  Report Type: 
  Country: None (occurrence: None)
  Receive Date: 20041026
  Receipt Date: 20040610
  Transmission Date: 20050328
  Serious: No
  Sender: FDA-Public Use
  Company Number: US-BRISTOL-MYERS SQUIBB COMPANY-12611539

PATIENT
  Age: 32 Year
  Sex: Female
  Weight: 102 kg

DRUGS (5)
  1. GLUCOPHAGE XR [Suspect]
     Indication: POLYCYSTIC OVARIES
     Dosage: THERAPY INTERRUPTED FOR 2 WEEKS; CURRENTLY TAKING 750 MG 1X/DAY
     Route: 048
     Dates: start: 20040101
  2. GLUCOPHAGE XR [Suspect]
     Indication: INSULIN RESISTANT DIABETES
     Dosage: THERAPY INTERRUPTED FOR 2 WEEKS; CURRENTLY TAKING 750 MG 1X/DAY
     Route: 048
     Dates: start: 20040101
  3. NOR-QD [Concomitant]
     Dosage: -NOT CURRENTLY TAKING
  4. PROGESTERONE [Concomitant]
     Dosage: -NOT CURRENTLY TAKING
  5. PREVACID [Concomitant]

REACTIONS (5)
  - BURNING SENSATION [None]
  - DIARRHOEA [None]
  - LIMB DISCOMFORT [None]
  - NAUSEA [None]
  - VOMITING [None]
